FAERS Safety Report 6678643-4 (Version None)
Quarter: 2010Q2

REPORT INFORMATION
  Report Type: 
  Country: None (occurrence: None)
  Receive Date: 20100413
  Receipt Date: 20100405
  Transmission Date: 20101027
  Serious: Yes (Hospitalization, Other)
  Sender: FDA-Public Use
  Company Number: US-PFIZER INC-2010013685

PATIENT
  Sex: Female
  Weight: 59 kg

DRUGS (3)
  1. DETROL LA [Suspect]
     Indication: INCONTINENCE
     Dosage: 4 MG, 1X/DAY
     Route: 048
     Dates: start: 20090101, end: 20100101
  2. DETROL LA [Suspect]
     Indication: HYPERTONIC BLADDER
  3. EVISTA [Concomitant]
     Indication: OSTEOPOROSIS
     Dosage: 60 MG, 1X/DAY
     Route: 048

REACTIONS (3)
  - DRUG INEFFECTIVE [None]
  - FALL [None]
  - PNEUMOTHORAX TRAUMATIC [None]
